FAERS Safety Report 9530304 (Version 1)
Quarter: 2013Q3

REPORT INFORMATION
  Report Type: Report from Study
  Country: US (occurrence: US)
  Receive Date: 20130917
  Receipt Date: 20130917
  Transmission Date: 20140515
  Serious: Yes (Hospitalization)
  Sender: FDA-Public Use
  Company Number: US-TEVA-432470USA

PATIENT
  Age: 1 Year
  Sex: Female
  Weight: 8.6 kg

DRUGS (5)
  1. LESTAURTINIB [Suspect]
     Route: 048
     Dates: start: 20121217, end: 20130909
  2. CYCLOPHOSPHAMIDE [Suspect]
     Route: 042
     Dates: start: 20121217, end: 20130809
  3. CYTARABINE [Suspect]
     Route: 042
     Dates: start: 20121217, end: 20130828
  4. ETOPOSIDE [Suspect]
     Route: 042
     Dates: start: 20121217, end: 20130809
  5. PEG-L-ASPARAGINASE [Suspect]
     Route: 030
     Dates: start: 20121217, end: 20130829

REACTIONS (1)
  - Febrile neutropenia [Not Recovered/Not Resolved]
